FAERS Safety Report 7129587-5 (Version None)
Quarter: 2010Q4

REPORT INFORMATION
  Report Type: 
  Country: None (occurrence: None)
  Receive Date: 20101130
  Receipt Date: 20101118
  Transmission Date: 20110411
  Serious: Yes (Other)
  Sender: FDA-Public Use
  Company Number: PHHY2010AU42388

PATIENT
  Sex: Female
  Weight: 82 kg

DRUGS (1)
  1. EXJADE [Suspect]
     Indication: MYELODYSPLASTIC SYNDROME
     Dosage: 500 MG DAILY
     Dates: start: 20080101

REACTIONS (5)
  - RASH [None]
  - SKIN EXFOLIATION [None]
  - TOOTH DEPOSIT [None]
  - TOOTH EROSION [None]
  - TOOTH LOSS [None]
